FAERS Safety Report 9187694 (Version 1)
Quarter: 2013Q1

REPORT INFORMATION
  Report Type: Report from Study
  Country: US (occurrence: US)
  Receive Date: 20130325
  Receipt Date: 20130325
  Transmission Date: 20140127
  Serious: Yes (Other)
  Sender: FDA-Public Use
  Company Number: US-MYLANLABS-2013S1005837

PATIENT
  Age: 89 Year
  Sex: Female
  Weight: 82.78 kg

DRUGS (1)
  1. CLOZAPINE TABLETS [Suspect]
     Indication: HALLUCINATION
     Route: 048
     Dates: end: 20130223

REACTIONS (1)
  - Cerebrovascular accident [Recovered/Resolved]
